FAERS Safety Report 12366637 (Version 2)
Quarter: 2016Q2

REPORT INFORMATION
  Report Type: Spontaneous
  Country: US (occurrence: US)
  Receive Date: 20160513
  Receipt Date: 20160620
  Transmission Date: 20160815
  Serious: No
  Sender: FDA-Public Use
  Company Number: US-009507513-1605USA003815

PATIENT
  Age: 56 Year
  Sex: Female

DRUGS (1)
  1. BELSOMRA [Suspect]
     Active Substance: SUVOREXANT
     Indication: INSOMNIA
     Dosage: 10 MG, QPM
     Route: 048
     Dates: start: 20160504, end: 20160505

REACTIONS (2)
  - Drug ineffective [Not Recovered/Not Resolved]
  - Malaise [Unknown]

NARRATIVE: CASE EVENT DATE: 201605
